FAERS Safety Report 22970702 (Version 3)
Quarter: 2023Q4

REPORT INFORMATION
  Report Type: Spontaneous
  Country: ES (occurrence: ES)
  Receive Date: 20230922
  Receipt Date: 20231018
  Transmission Date: 20240109
  Serious: Yes (Other)
  Sender: FDA-Public Use
  Company Number: ES-ABBVIE-5341351

PATIENT
  Sex: Male

DRUGS (4)
  1. QUETIAPINE [Suspect]
     Active Substance: QUETIAPINE
     Indication: Product used for unknown indication
     Dosage: UNK
     Route: 065
     Dates: start: 202307
  2. CARBIDOPA\LEVODOPA [Suspect]
     Active Substance: CARBIDOPA\LEVODOPA
     Indication: Parkinson^s disease
     Dosage: THE CONTINUOUS DOSE AND THE EXTRA DOSE INCREASED
     Route: 065
     Dates: start: 20210923, end: 202308
  3. CARBIDOPA\LEVODOPA [Suspect]
     Active Substance: CARBIDOPA\LEVODOPA
     Dosage: CONTINUES DOSE RATE DECREASED FROM 3.8 TO 3.6 ML/H
     Route: 065
     Dates: start: 2023
  4. CARBIDOPA\LEVODOPA [Suspect]
     Active Substance: CARBIDOPA\LEVODOPA
     Dosage: THE CONTINUOUS DOSE AND THE EXTRA DOSE INCREASED
     Route: 065
     Dates: start: 202308, end: 2023

REACTIONS (12)
  - Hallucination [Recovered/Resolved]
  - Gait disturbance [Not Recovered/Not Resolved]
  - Freezing phenomenon [Not Recovered/Not Resolved]
  - Dyskinesia [Recovered/Resolved]
  - Mobility decreased [Unknown]
  - Gait inability [Recovered/Resolved]
  - Unevaluable event [Not Recovered/Not Resolved]
  - Vertigo [Recovered/Resolved]
  - Urinary tract infection [Recovered/Resolved]
  - Vomiting [Recovered/Resolved]
  - Drug ineffective [Not Recovered/Not Resolved]
  - Parkinson^s disease [Unknown]

NARRATIVE: CASE EVENT DATE: 20210901
